FAERS Safety Report 25921893 (Version 1)
Quarter: 2025Q4

REPORT INFORMATION
  Report Type: Report from Study
  Country: US (occurrence: US)
  Receive Date: 20251015
  Receipt Date: 20251015
  Transmission Date: 20260117
  Serious: Yes (Hospitalization, Other)
  Sender: ALEXION PHARMACEUTICALS
  Company Number: 202410USA022979US

PATIENT
  Age: 11 Year
  Sex: Female

DRUGS (1)
  1. STRENSIQ [Suspect]
     Active Substance: ASFOTASE ALFA
     Indication: Phosphorus metabolism disorder
     Dosage: 30 MILLIGRAM, TIW, ROTATE INJECTION SITES
     Route: 065

REACTIONS (9)
  - Clostridium difficile colitis [Unknown]
  - Paroxysmal sympathetic hyperactivity [Unknown]
  - Autonomic nervous system imbalance [Unknown]
  - Mental status changes [Unknown]
  - Pyrexia [Unknown]
  - Abdominal discomfort [Unknown]
  - Sleep apnoea syndrome [Unknown]
  - Soft tissue swelling [Unknown]
  - Decreased activity [Unknown]

NARRATIVE: CASE EVENT DATE: 20250622
